FAERS Safety Report 17784524 (Version 1)
Quarter: 2020Q2

REPORT INFORMATION
  Report Type: Report from Study
  Country: US (occurrence: US)
  Receive Date: 20200514
  Receipt Date: 20200514
  Transmission Date: 20200714
  Serious: Yes (Hospitalization)
  Sender: FDA-Public Use
  Company Number: US-ROCHE-2597552

PATIENT
  Age: 48 Year
  Sex: Female
  Weight: 149.82 kg

DRUGS (2)
  1. METFORMIN [Concomitant]
     Active Substance: METFORMIN HYDROCHLORIDE
     Indication: DIABETES MELLITUS
     Route: 048
  2. OCREVUS [Suspect]
     Active Substance: OCRELIZUMAB
     Indication: MULTIPLE SCLEROSIS
     Dosage: DATE OF TREATMENT: 14/NOV/2019 AND 16/MAY/2019
     Route: 042
     Dates: start: 20180320

REACTIONS (11)
  - Tachycardia [Recovered/Resolved]
  - Urinary tract infection [Unknown]
  - Lethargy [Recovered/Resolved]
  - Cardiac failure congestive [Recovered/Resolved]
  - Visual impairment [Recovered/Resolved]
  - Blood glucose increased [Recovered/Resolved]
  - Cognitive disorder [Recovered/Resolved]
  - Dysarthria [Recovered/Resolved]
  - Multiple sclerosis relapse [Recovered/Resolved with Sequelae]
  - Dyspnoea [Recovered/Resolved]
  - Asthenia [Recovered/Resolved]

NARRATIVE: CASE EVENT DATE: 202004
